FAERS Safety Report 15895505 (Version 1)
Quarter: 2019Q1

REPORT INFORMATION
  Report Type: Spontaneous
  Country: FR (occurrence: FR)
  Receive Date: 20190131
  Receipt Date: 20190131
  Transmission Date: 20190417
  Serious: Yes (Hospitalization)
  Sender: FDA-Public Use
  Company Number: FR-PFIZER INC-2019034889

PATIENT
  Age: 50 Year
  Sex: Female

DRUGS (3)
  1. ZOLPIDEM [Suspect]
     Active Substance: ZOLPIDEM\ZOLPIDEM TARTRATE
     Dosage: 230 MG, UNK
     Route: 048
     Dates: start: 20181213, end: 20181213
  2. ALPRAZOLAM. [Suspect]
     Active Substance: ALPRAZOLAM
     Dosage: 15 MG, UNK
     Route: 048
     Dates: start: 20181213, end: 20181213
  3. SERESTA [Suspect]
     Active Substance: OXAZEPAM
     Dosage: 150 MG, UNK
     Route: 048
     Dates: start: 20181213, end: 20181213

REACTIONS (3)
  - Coma [Recovered/Resolved]
  - Overdose [Unknown]
  - Toxicity to various agents [Unknown]

NARRATIVE: CASE EVENT DATE: 20181213
